FAERS Safety Report 4736168-7 (Version None)
Quarter: 2005Q3

REPORT INFORMATION
  Report Type: 
  Country: None (occurrence: None)
  Receive Date: 20050728
  Receipt Date: 20050624
  Transmission Date: 20060218
  Serious: Yes (Life-Threatening, Hospitalization)
  Sender: FDA-Public Use
  Company Number: 200515325US

PATIENT
  Age: 64 Year
  Sex: Male

DRUGS (3)
  1. KETEK [Suspect]
     Dosage: 800 MG
     Dates: start: 20050621, end: 20050621
  2. MESTINON [Concomitant]
  3. NEBULIZER NOS [Concomitant]

REACTIONS (1)
  - RESPIRATORY ARREST [None]
